FAERS Safety Report 11050946 (Version 1)
Quarter: 2015Q2

REPORT INFORMATION
  Report Type: Spontaneous
  Country: US (occurrence: None)
  Receive Date: 20150420
  Receipt Date: 20150420
  Transmission Date: 20150821
  Serious: No
  Sender: FDA-Public Use
  Company Number: None

PATIENT

DRUGS (1)
  1. DEXTROSE. [Suspect]
     Active Substance: DEXTROSE
     Dosage: DOSAGE FORM: INJECTABLE , IV BAG, 50 ML PARTIAL FILL IN 100 ML

REACTIONS (2)
  - Incorrect dose administered [None]
  - Product packaging quantity issue [None]
